FAERS Safety Report 20626474 (Version 1)
Quarter: 2022Q1

REPORT INFORMATION
  Report Type: Spontaneous
  Country: US (occurrence: None)
  Receive Date: 20220322
  Receipt Date: 20220322
  Transmission Date: 20220423
  Serious: No
  Sender: FDA-Public Use
  Company Number: None

PATIENT
  Sex: Male

DRUGS (1)
  1. VUMERITY [Suspect]
     Active Substance: DIROXIMEL FUMARATE
     Indication: Multiple sclerosis
     Dosage: OTHER QUANTITY : 231MG/462MG;?FREQUENCY : TWICE A DAY;?
     Route: 048
     Dates: start: 20220224

REACTIONS (8)
  - Drug ineffective [None]
  - Multiple sclerosis relapse [None]
  - Fatigue [None]
  - Pain [None]
  - Restlessness [None]
  - Chromaturia [None]
  - Yellow skin [None]
  - Ocular icterus [None]
